FAERS Safety Report 8834733 (Version 2)
Quarter: 2012Q4

REPORT INFORMATION
  Report Type: 
  Country: US (occurrence: US)
  Receive Date: 20121010
  Receipt Date: 20121019
  Transmission Date: 20130627
  Serious: No
  Sender: FDA-Public Use
  Company Number: US-BAYER-2012-104146

PATIENT
  Age: 58 Year
  Sex: Female

DRUGS (3)
  1. CLIMARA [Suspect]
     Indication: HOT FLUSH
     Dosage: 25 mg, UNK
     Route: 062
     Dates: start: 2003, end: 201208
  2. CLIMARA [Suspect]
     Indication: VULVOVAGINAL DRYNESS
     Dosage: 37.5 mg, UNK
     Route: 062
     Dates: start: 201208
  3. CLIMARA [Suspect]
     Indication: HOT FLUSH
     Dosage: 25 mg, UNK
     Route: 062
     Dates: start: 201209

REACTIONS (8)
  - Hot flush [Not Recovered/Not Resolved]
  - Insomnia [Not Recovered/Not Resolved]
  - Fluid retention [None]
  - Weight increased [None]
  - Allergic sinusitis [None]
  - Fatigue [Not Recovered/Not Resolved]
  - Hyperhidrosis [Not Recovered/Not Resolved]
  - Product adhesion issue [None]
